FAERS Safety Report 10658792 (Version 1)
Quarter: 2014Q4

REPORT INFORMATION
  Report Type: Report from Study
  Country: KR (occurrence: KR)
  Receive Date: 20141217
  Receipt Date: 20141217
  Transmission Date: 20150529
  Serious: Yes (Hospitalization, Other)
  Sender: FDA-Public Use
  Company Number: KR-GLAXOSMITHKLINE-KR2014GSK034358

PATIENT
  Sex: Male
  Weight: 65.8 kg

DRUGS (12)
  1. COUGH MEDICINE (NOS) [Concomitant]
     Indication: PRODUCTIVE COUGH
  2. TOPOTECAN HYDROCHLORIDE. [Suspect]
     Active Substance: TOPOTECAN HYDROCHLORIDE
     Dosage: 4 MG, 1D
     Route: 048
     Dates: start: 20140912, end: 20140916
  3. SOLONDO [Concomitant]
     Active Substance: PREDNISOLONE
     Dosage: 20 MG, 1D
     Route: 048
     Dates: start: 20140926, end: 20141013
  4. LEVOTUSS [Concomitant]
     Active Substance: LEVODROPROPIZINE
     Indication: PRODUCTIVE COUGH
  5. SYNATURA SYRUP [Concomitant]
     Indication: PRODUCTIVE COUGH
  6. COUGH MEDICINE (NOS) [Concomitant]
     Indication: COUGH
     Dosage: 300 MG, TID
     Route: 048
     Dates: start: 20140213, end: 20141013
  7. LEVOTUSS [Concomitant]
     Active Substance: LEVODROPROPIZINE
     Indication: COUGH
     Dosage: 60 MG, TID
     Route: 048
     Dates: start: 20140207, end: 20141013
  8. SYNATURA SYRUP [Concomitant]
     Indication: COUGH
     Dosage: 15 ML, TID
     Route: 048
     Dates: start: 20140904, end: 20140919
  9. TOPOTECAN HYDROCHLORIDE. [Suspect]
     Active Substance: TOPOTECAN HYDROCHLORIDE
     Indication: SMALL CELL LUNG CANCER
     Dosage: 4 MG, 1D
     Route: 048
     Dates: start: 20140815, end: 20140819
  10. LANSTON [Concomitant]
     Active Substance: LANSOPRAZOLE
     Indication: ABDOMINAL PAIN UPPER
     Dosage: 30 MG, 1D
     Route: 048
     Dates: start: 20140821, end: 20141011
  11. NESP [Concomitant]
     Active Substance: DARBEPOETIN ALFA
     Indication: HAEMOGLOBIN DECREASED
     Dosage: UNK UNK, SINGLE
     Route: 058
     Dates: start: 20140904, end: 20140904
  12. SOLONDO [Concomitant]
     Active Substance: PREDNISOLONE
     Indication: HAEMOLYTIC ANAEMIA
     Dosage: 10 MG, BID
     Route: 048
     Dates: start: 20140821, end: 20140925

REACTIONS (5)
  - Hypoxia [Recovered/Resolved]
  - Neutropenia [Recovered/Resolved]
  - Diarrhoea [Recovered/Resolved]
  - Sepsis [Recovered/Resolved]
  - Metabolic acidosis [Recovered/Resolved]

NARRATIVE: CASE EVENT DATE: 20140917
